FAERS Safety Report 6982691-4 (Version None)
Quarter: 2010Q3

REPORT INFORMATION
  Report Type: 
  Country: None (occurrence: None)
  Receive Date: 20100914
  Receipt Date: 20100308
  Transmission Date: 20110219
  Serious: No
  Sender: FDA-Public Use
  Company Number: US-PFIZER INC-2010030073

PATIENT
  Sex: Female
  Weight: 45.4 kg

DRUGS (2)
  1. LYRICA [Suspect]
     Indication: BACK PAIN
     Dosage: HALF THE LOWEST DOSE ONCE DAILY
     Route: 048
     Dates: start: 20090101
  2. LYRICA [Suspect]
     Indication: FIBROMYALGIA

REACTIONS (1)
  - FEMALE ORGASMIC DISORDER [None]
